FAERS Safety Report 6286382-7 (Version None)
Quarter: 2009Q3

REPORT INFORMATION
  Report Type: 
  Country: None (occurrence: None)
  Receive Date: 20090727
  Receipt Date: 20090727
  Transmission Date: 20100115
  Serious: No
  Sender: FDA-Public Use
  Company Number: None

PATIENT
  Age: 68 Year
  Sex: Female

DRUGS (1)
  1. AUGMENTIN [Suspect]
     Dosage: 1 TAB PO BID
     Route: 048
     Dates: start: 20070924, end: 20071002

REACTIONS (7)
  - ALCOHOL USE [None]
  - CHOLELITHIASIS [None]
  - CHROMATURIA [None]
  - HEPATIC CIRRHOSIS [None]
  - HEPATITIS CHOLESTATIC [None]
  - LIVER INJURY [None]
  - URINARY TRACT INFECTION [None]
